FAERS Safety Report 7058052-9 (Version None)
Quarter: 2010Q4

REPORT INFORMATION
  Report Type: 
  Country: None (occurrence: None)
  Receive Date: 20101021
  Receipt Date: 20101021
  Transmission Date: 20110411
  Serious: Yes (Other)
  Sender: FDA-Public Use
  Company Number: None

PATIENT
  Age: 62 Year
  Sex: Male
  Weight: 83.9154 kg

DRUGS (1)
  1. EFFIENT [Suspect]
     Indication: CORONARY ARTERIAL STENT INSERTION
     Dosage: 60 MG LOADING DOSE PO
     Route: 048
     Dates: start: 20101013, end: 20101019

REACTIONS (2)
  - DRUG HYPERSENSITIVITY [None]
  - SKIN IRRITATION [None]
